FAERS Safety Report 9838934 (Version 1)
Quarter: 2014Q1

REPORT INFORMATION
  Report Type: Spontaneous
  Country: KR (occurrence: KR)
  Receive Date: 20140123
  Receipt Date: 20140123
  Transmission Date: 20141002
  Serious: No
  Sender: FDA-Public Use
  Company Number: KR-JNJFOC-20140110789

PATIENT
  Age: 70 Year
  Sex: Male

DRUGS (2)
  1. DUROGESIC D-TRANS [Suspect]
     Indication: LIMB AMPUTATION
     Dosage: PRESCRIBED 30 PATCHES.
     Route: 062
  2. TRIDOL [Concomitant]
     Indication: PAIN
     Route: 065
     Dates: start: 2009

REACTIONS (2)
  - Inappropriate schedule of drug administration [Unknown]
  - Drug ineffective [Not Recovered/Not Resolved]
